FAERS Safety Report 6875618-7 (Version None)
Quarter: 2010Q3

REPORT INFORMATION
  Report Type: 
  Country: None (occurrence: None)
  Receive Date: 20100727
  Receipt Date: 20100716
  Transmission Date: 20110219
  Serious: Yes (Other)
  Sender: FDA-Public Use
  Company Number: TW-JNJCH-2010015773

PATIENT
  Age: 76 Year
  Sex: Male

DRUGS (1)
  1. COOL MINT LISTERINE [Suspect]
     Indication: DENTAL DISORDER PROPHYLAXIS
     Dosage: TEXT:20C.C.
     Route: 048
     Dates: start: 20100628, end: 20100702

REACTIONS (6)
  - DISCOMFORT [None]
  - INFLAMMATION [None]
  - MUCOSAL EXFOLIATION [None]
  - OROPHARYNGEAL PAIN [None]
  - PHARYNGEAL OEDEMA [None]
  - WRONG TECHNIQUE IN DRUG USAGE PROCESS [None]
